FAERS Safety Report 10489151 (Version 2)
Quarter: 2014Q4

REPORT INFORMATION
  Report Type: Spontaneous
  Country: CH (occurrence: CH)
  Receive Date: 20141002
  Receipt Date: 20141002
  Transmission Date: 20150528
  Serious: Yes (Hospitalization)
  Sender: FDA-Public Use
  Company Number: CH-EISAI MEDICAL RESEARCH-E2007-01643-SPO-CH

PATIENT
  Age: 22 Year
  Sex: Male

DRUGS (15)
  1. PHENYTOIN. [Interacting]
     Active Substance: PHENYTOIN
     Route: 040
     Dates: start: 201305, end: 201305
  2. PHENYTOIN. [Interacting]
     Active Substance: PHENYTOIN
     Route: 040
     Dates: start: 201305, end: 201305
  3. FYCOMPA [Interacting]
     Active Substance: PERAMPANEL
     Route: 048
     Dates: start: 201305, end: 201305
  4. RIVOTRIL [Concomitant]
     Active Substance: CLONAZEPAM
     Indication: PARTIAL SEIZURES
     Route: 048
     Dates: end: 201305
  5. PHENYTOIN. [Interacting]
     Active Substance: PHENYTOIN
     Route: 048
     Dates: end: 201305
  6. PHENYTOIN. [Interacting]
     Active Substance: PHENYTOIN
     Route: 048
     Dates: start: 201305, end: 201305
  7. PHENYTOIN. [Interacting]
     Active Substance: PHENYTOIN
     Route: 048
     Dates: start: 201305
  8. TROBALT (RETIGABINE) [Suspect]
     Active Substance: EZOGABINE
     Indication: PARTIAL SEIZURES
     Route: 048
     Dates: end: 201305
  9. TROBALT (RETIGABINE) [Suspect]
     Active Substance: EZOGABINE
     Dosage: DOSE TAPERED (UNKNOWN)
     Route: 048
     Dates: start: 201305, end: 201305
  10. FYCOMPA [Suspect]
     Active Substance: PERAMPANEL
     Indication: PARTIAL SEIZURES
     Route: 048
     Dates: start: 201304, end: 20130428
  11. FYCOMPA [Interacting]
     Active Substance: PERAMPANEL
     Route: 048
     Dates: start: 20130429, end: 201305
  12. PHENYTOIN. [Interacting]
     Active Substance: PHENYTOIN
     Indication: PARTIAL SEIZURES
     Route: 048
  13. TRILEPTAL [Interacting]
     Active Substance: OXCARBAZEPINE
     Indication: PARTIAL SEIZURES
     Dosage: 1800 MG/DAY
     Route: 048
  14. FYCOMPA [Interacting]
     Active Substance: PERAMPANEL
     Route: 048
     Dates: start: 201305
  15. RIVOTRIL [Concomitant]
     Active Substance: CLONAZEPAM
     Route: 048
     Dates: start: 201305

REACTIONS (4)
  - Drug level decreased [Recovered/Resolved]
  - Anticonvulsant drug level below therapeutic [Recovering/Resolving]
  - Drug interaction [Recovered/Resolved]
  - Status epilepticus [Recovered/Resolved]

NARRATIVE: CASE EVENT DATE: 201305
